FAERS Safety Report 6551169-4 (Version None)
Quarter: 2010Q1

REPORT INFORMATION
  Report Type: 
  Country: None (occurrence: None)
  Receive Date: 20100121
  Receipt Date: 20100108
  Transmission Date: 20100710
  Serious: Yes (Hospitalization)
  Sender: FDA-Public Use
  Company Number: 1000011315

PATIENT
  Age: 66 Year
  Sex: Female

DRUGS (4)
  1. ESCITALOPRAM OXALATE [Suspect]
     Dosage: ORAL
     Route: 048
  2. DESMOPRESSIN ACETATE [Suspect]
     Indication: POLYURIA
     Dosage: 0.5 DOSAGE FORMS (0.5 DOSAGE FORMS, 1 IN1 D) RESPIRATORY (INHALATION)
     Route: 055
     Dates: start: 20090701
  3. VAGIFEM [Concomitant]
  4. TOVIAZ [Concomitant]

REACTIONS (5)
  - BLOOD CALCIUM DECREASED [None]
  - BLOOD CHLORIDE DECREASED [None]
  - BLOOD POTASSIUM DECREASED [None]
  - DRUG INTERACTION [None]
  - HYPONATRAEMIA [None]
